FAERS Safety Report 13595334 (Version 1)
Quarter: 2017Q2

REPORT INFORMATION
  Report Type: Spontaneous
  Country: FR (occurrence: FR)
  Receive Date: 20170531
  Receipt Date: 20170531
  Transmission Date: 20170830
  Serious: Yes (Life-Threatening, Hospitalization)
  Sender: FDA-Public Use
  Company Number: FR-ACCORD-051800

PATIENT
  Age: 68 Year
  Sex: Male

DRUGS (14)
  1. MODOPAR [Concomitant]
     Active Substance: BENSERAZIDE HYDROCHLORIDE\LEVODOPA
     Indication: PARKINSON^S DISEASE
     Dosage: 250 MG THREE TIMES DAILY
     Route: 048
  2. METFORMINE ARROW [Concomitant]
     Active Substance: METFORMIN HYDROCHLORIDE
     Indication: TYPE 2 DIABETES MELLITUS
     Dosage: 500 MG ONCE DAILY
     Route: 048
  3. LASILIX SPECIAL [Concomitant]
     Active Substance: FUROSEMIDE
     Dosage: 250 MG, TWICE DAILY
     Route: 048
  4. SIFROL [Concomitant]
     Active Substance: PRAMIPEXOLE
     Indication: PARKINSON^S DISEASE
     Route: 048
  5. ALDACTONE [Concomitant]
     Active Substance: SPIRONOLACTONE
     Dosage: 25 MG ONCE DAILY
     Route: 048
  6. LERCANIDIPINE ARROW [Concomitant]
     Active Substance: LERCANIDIPINE
     Dosage: 20 MG ONCE DAILY
     Route: 048
  7. CISPLATINE ACCORD [Suspect]
     Active Substance: CISPLATIN
     Indication: RECTAL CANCER
     Dosage: 200 MG, IN ONE SINGLE INTAKE
     Route: 042
     Dates: start: 20170311
  8. CRESTOR [Concomitant]
     Active Substance: ROSUVASTATIN CALCIUM
     Dosage: 5 MG ONCE DAILY
     Route: 048
  9. ETOPOSIDE MYLAN [Suspect]
     Active Substance: ETOPOSIDE
     Indication: RECTAL CANCER
     Dosage: 200 MG ONCE DAILY
     Route: 042
     Dates: start: 20170311, end: 20170313
  10. AZILECT [Concomitant]
     Active Substance: RASAGILINE MESYLATE
     Indication: PARKINSON^S DISEASE
     Dosage: 1 MG ONCE DAILY
     Route: 048
  11. PANTOPRAZOLE SODIUM. [Concomitant]
     Active Substance: PANTOPRAZOLE SODIUM
     Indication: PROPHYLAXIS AGAINST GASTROINTESTINAL ULCER
     Dosage: 20 MG ONCE DAILY
     Route: 048
  12. KARDEGIC [Concomitant]
     Active Substance: ASPIRIN LYSINE
     Dosage: 75 MG ONCE DAILY
     Route: 048
  13. DIGOXINE NATIVELLE [Concomitant]
     Active Substance: DIGOXIN
     Dosage: 0.25 MG ONCE DAILY
     Route: 048
  14. BISOPROLOL ARROW [Concomitant]
     Active Substance: BISOPROLOL
     Dosage: 10 MG ONCE DAILY
     Route: 048

REACTIONS (7)
  - Acute kidney injury [Recovered/Resolved]
  - Paraesthesia [Recovered/Resolved]
  - Bone marrow failure [Recovered/Resolved]
  - Off label use [Unknown]
  - Melaena [Unknown]
  - Neuropathy peripheral [Unknown]
  - Ulcer [Unknown]

NARRATIVE: CASE EVENT DATE: 20170313
